FAERS Safety Report 16305645 (Version 1)
Quarter: 2019Q2

REPORT INFORMATION
  Report Type: Spontaneous
  Country: HR (occurrence: HR)
  Receive Date: 20190513
  Receipt Date: 20190513
  Transmission Date: 20190711
  Serious: Yes (Life-Threatening, Hospitalization)
  Sender: FDA-Public Use
  Company Number: HR-BAYER-2019-090332

PATIENT
  Age: 46 Year
  Sex: Female
  Weight: 96 kg

DRUGS (2)
  1. CIPROFLOXACIN. [Suspect]
     Active Substance: CIPROFLOXACIN
     Indication: URETHRITIS
     Dosage: 1000 MG, BID
     Route: 048
     Dates: start: 20190329
  2. SKUDEXA [Suspect]
     Active Substance: DEXKETOPROFEN\TRAMADOL
     Indication: POLYARTHRITIS
     Dosage: 2 DF, UNK
     Route: 048
     Dates: start: 20190402

REACTIONS (3)
  - Pain in extremity [Recovered/Resolved with Sequelae]
  - Peripheral coldness [Recovered/Resolved with Sequelae]
  - Paraesthesia [Recovered/Resolved with Sequelae]

NARRATIVE: CASE EVENT DATE: 20190330
